FAERS Safety Report 11358941 (Version 1)
Quarter: 2015Q3

REPORT INFORMATION
  Report Type: Spontaneous
  Country: US (occurrence: None)
  Receive Date: 20150807
  Receipt Date: 20150807
  Transmission Date: 20151125
  Serious: Yes (Disabling)
  Sender: FDA-Public Use
  Company Number: None

PATIENT
  Age: 38 Year
  Sex: Female
  Weight: 57.61 kg

DRUGS (1)
  1. BOTOX [Suspect]
     Active Substance: ONABOTULINUMTOXINA
     Indication: MIGRAINE PROPHYLAXIS
     Route: 030
     Dates: start: 20101209, end: 20150626

REACTIONS (16)
  - Head discomfort [None]
  - Ear discomfort [None]
  - Mental disorder [None]
  - Deafness [None]
  - Dizziness [None]
  - Nausea [None]
  - Dysphagia [None]
  - Disturbance in attention [None]
  - Tinnitus [None]
  - Blood pressure decreased [None]
  - Musculoskeletal stiffness [None]
  - Heart rate irregular [None]
  - Gluten sensitivity [None]
  - Malaise [None]
  - Ventricular extrasystoles [None]
  - Hypoglycaemia [None]

NARRATIVE: CASE EVENT DATE: 20150806
